FAERS Safety Report 17523709 (Version 1)
Quarter: 2020Q1

REPORT INFORMATION
  Report Type: Spontaneous
  Country: GB (occurrence: GB)
  Receive Date: 20200310
  Receipt Date: 20200310
  Transmission Date: 20200409
  Serious: Yes (Hospitalization, Other)
  Sender: FDA-Public Use
  Company Number: GB-TEVA-2020-GB-1196517

PATIENT
  Age: 72 Year
  Sex: Female
  Weight: 95 kg

DRUGS (4)
  1. DERMOL [Concomitant]
     Active Substance: BENZALKONIUM CHLORIDE\CHLORHEXIDINE HYDROCHLORIDE\ISOPROPYL MYRISTATE\PARAFFIN
     Dosage: USE AS DIRECTED
     Dates: start: 20191113
  2. SIMVASTATIN. [Concomitant]
     Active Substance: SIMVASTATIN
     Dosage: AT NIGHT
     Dates: start: 20080318, end: 20191227
  3. INDAPAMIDE. [Suspect]
     Active Substance: INDAPAMIDE
     Dosage: EACH MORNING 2.5 MG
     Route: 065
     Dates: start: 20200127
  4. AMLODIPINE [Concomitant]
     Active Substance: AMLODIPINE BESYLATE
     Dates: start: 20191227, end: 20200124

REACTIONS (2)
  - Mouth ulceration [Unknown]
  - Rash [Unknown]

NARRATIVE: CASE EVENT DATE: 20200214
